FAERS Safety Report 8965803 (Version 2)
Quarter: 2013Q1

REPORT INFORMATION
  Report Type: Spontaneous
  Country: FR (occurrence: None)
  Receive Date: 20121206
  Receipt Date: 20130307
  Transmission Date: 20140127
  Serious: Yes (Life-Threatening, Hospitalization, Other)
  Sender: FDA-Public Use
  Company Number: AUR-APL-2012-05189

PATIENT
  Age: 70 Year
  Sex: Female
  Weight: 65 kg

DRUGS (5)
  1. METFORMIN (METFORMIN) [Suspect]
     Indication: PRODUCT USED FOR UNKNOWN INDICATION
  2. INDAPAMIDE [Suspect]
     Indication: HYPERTENSION
  3. MORPHINE [Suspect]
     Dosage: 40 MG (10 MG, 4 IN 1 D), SUBCUTANEOUS
     Route: 058
  4. KETOPROFEN [Suspect]
     Route: 042
  5. ACETAMINOPHEN (PARACETAMOL) [Concomitant]

REACTIONS (10)
  - Oliguria [None]
  - Hypoglycaemia [None]
  - Hypothermia [None]
  - Vomiting [None]
  - Tachycardia [None]
  - Hypotension [None]
  - Renal failure acute [None]
  - Lactic acidosis [None]
  - Respiratory distress [None]
  - Haemodialysis [None]
